FAERS Safety Report 21925890 (Version 2)
Quarter: 2023Q1

REPORT INFORMATION
  Report Type: Spontaneous
  Country: CA (occurrence: CA)
  Receive Date: 20230130
  Receipt Date: 20230328
  Transmission Date: 20230417
  Serious: Yes (Other)
  Sender: FDA-Public Use
  Company Number: CA-002147023-NVSC2023CA015619

PATIENT
  Age: 51 Year
  Sex: Female

DRUGS (31)
  1. FLUOROURACIL [Suspect]
     Active Substance: FLUOROURACIL
     Indication: Progesterone receptor assay negative
     Dosage: UNK
     Route: 065
  2. FLUOROURACIL [Suspect]
     Active Substance: FLUOROURACIL
     Indication: Oestrogen receptor assay negative
     Dosage: UNK, CYCLIC (CYCLICAL)
     Route: 065
  3. FLUOROURACIL [Suspect]
     Active Substance: FLUOROURACIL
     Indication: HER2 positive breast cancer
     Dosage: UNK
     Route: 065
  4. FLUOROURACIL [Suspect]
     Active Substance: FLUOROURACIL
     Indication: Breast cancer stage III
     Dosage: UNK
     Route: 065
  5. DOCETAXEL [Suspect]
     Active Substance: DOCETAXEL
     Indication: Progesterone receptor assay negative
     Dosage: UNK
     Route: 065
  6. DOCETAXEL [Suspect]
     Active Substance: DOCETAXEL
     Indication: Oestrogen receptor assay negative
     Dosage: UNK, CYCLIC (CYCLICAL)
     Route: 042
  7. DOCETAXEL [Suspect]
     Active Substance: DOCETAXEL
     Indication: HER2 positive breast cancer
     Dosage: UNK
     Route: 042
  8. DOCETAXEL [Suspect]
     Active Substance: DOCETAXEL
     Indication: Breast cancer stage III
     Dosage: UNK
     Route: 065
  9. CYCLOPHOSPHAMIDE [Suspect]
     Active Substance: CYCLOPHOSPHAMIDE
     Indication: Progesterone receptor assay negative
     Dosage: UNK
     Route: 065
  10. CYCLOPHOSPHAMIDE [Suspect]
     Active Substance: CYCLOPHOSPHAMIDE
     Indication: Oestrogen receptor assay negative
     Dosage: UNK, CYCLIC
     Route: 065
  11. CYCLOPHOSPHAMIDE [Suspect]
     Active Substance: CYCLOPHOSPHAMIDE
     Indication: HER2 positive breast cancer
     Dosage: UNK
     Route: 065
  12. CYCLOPHOSPHAMIDE [Suspect]
     Active Substance: CYCLOPHOSPHAMIDE
     Indication: Breast cancer stage III
     Dosage: UNK
     Route: 065
  13. EPIRUBICIN HYDROCHLORIDE [Suspect]
     Active Substance: EPIRUBICIN HYDROCHLORIDE
     Indication: Progesterone receptor assay negative
     Dosage: UNK
     Route: 065
  14. EPIRUBICIN HYDROCHLORIDE [Suspect]
     Active Substance: EPIRUBICIN HYDROCHLORIDE
     Indication: Oestrogen receptor assay negative
     Dosage: 100 MG/M2, CYCLIC (CYCLICAL)
     Route: 065
  15. EPIRUBICIN HYDROCHLORIDE [Suspect]
     Active Substance: EPIRUBICIN HYDROCHLORIDE
     Indication: HER2 positive breast cancer
     Dosage: UNK
     Route: 042
  16. EPIRUBICIN HYDROCHLORIDE [Suspect]
     Active Substance: EPIRUBICIN HYDROCHLORIDE
     Indication: Breast cancer stage III
     Dosage: UNK
     Route: 065
  17. EPIRUBICIN HYDROCHLORIDE [Suspect]
     Active Substance: EPIRUBICIN HYDROCHLORIDE
     Dosage: UNK
     Route: 065
  18. EPIRUBICIN HYDROCHLORIDE [Suspect]
     Active Substance: EPIRUBICIN HYDROCHLORIDE
     Dosage: UNK
     Route: 065
  19. EPIRUBICIN HYDROCHLORIDE [Suspect]
     Active Substance: EPIRUBICIN HYDROCHLORIDE
     Dosage: UNK
     Route: 065
  20. EPIRUBICIN HYDROCHLORIDE [Suspect]
     Active Substance: EPIRUBICIN HYDROCHLORIDE
     Dosage: UNK
     Route: 065
  21. KADCYLA [Suspect]
     Active Substance: ADO-TRASTUZUMAB EMTANSINE
     Indication: Oestrogen receptor assay negative
     Dosage: UNK (POWDER FOR SOLUTION)
     Route: 065
  22. TRASTUZUMAB [Suspect]
     Active Substance: TRASTUZUMAB
     Indication: Progesterone receptor assay negative
     Dosage: UNK, CYCLIC (CYCLICAL)
     Route: 065
  23. TRASTUZUMAB [Suspect]
     Active Substance: TRASTUZUMAB
     Indication: Oestrogen receptor assay negative
     Dosage: UNK
     Route: 065
  24. TRASTUZUMAB [Suspect]
     Active Substance: TRASTUZUMAB
     Indication: HER2 positive breast cancer
     Dosage: UNK, CYCLIC (CYCLICAL) (42 DAYS)
     Route: 065
  25. TRASTUZUMAB [Suspect]
     Active Substance: TRASTUZUMAB
     Indication: Breast cancer stage III
     Dosage: UNK
     Route: 065
  26. RAMIPRIL [Suspect]
     Active Substance: RAMIPRIL
     Indication: Cardiac failure congestive
     Dosage: UNK
     Route: 065
  27. CYCLOPHOSPHAMIDE [Suspect]
     Active Substance: CYCLOPHOSPHAMIDE
     Indication: Oestrogen receptor assay negative
     Dosage: UNK
     Route: 065
  28. CYCLOPHOSPHAMIDE [Suspect]
     Active Substance: CYCLOPHOSPHAMIDE
     Indication: Progesterone receptor assay negative
     Dosage: UNK
     Route: 065
  29. CYCLOPHOSPHAMIDE [Suspect]
     Active Substance: CYCLOPHOSPHAMIDE
     Indication: HER2 positive breast cancer
     Dosage: UNK
     Route: 065
  30. CYCLOPHOSPHAMIDE [Suspect]
     Active Substance: CYCLOPHOSPHAMIDE
     Indication: Breast cancer stage III
     Dosage: UNK
     Route: 065
  31. ALTACE [Suspect]
     Active Substance: RAMIPRIL
     Indication: Cardiac failure congestive
     Dosage: UNK
     Route: 065

REACTIONS (5)
  - Ejection fraction decreased [Unknown]
  - Left ventricular dysfunction [Unknown]
  - Troponin I increased [Unknown]
  - Drug intolerance [Unknown]
  - Cardiac failure congestive [Unknown]
